FAERS Safety Report 8500220-0 (Version None)
Quarter: 2012Q3

REPORT INFORMATION
  Report Type: 
  Country: None (occurrence: None)
  Receive Date: 20120710
  Receipt Date: 20120704
  Transmission Date: 20120928
  Serious: Yes (Death, Life-Threatening)
  Sender: FDA-Public Use
  Company Number: JP-CELGENEUS-087-50794-12063523

PATIENT
  Sex: Female
  Weight: 41 kg

DRUGS (3)
  1. VIDAZA [Suspect]
     Dosage: 75 MILLIGRAM/SQ. METER
     Route: 041
     Dates: start: 20120419, end: 20120425
  2. MAGNESIUM OXIDE [Concomitant]
     Route: 065
     Dates: start: 20120423, end: 20120606
  3. VIDAZA [Suspect]
     Dosage: 75 MILLIGRAM/SQ. METER
     Route: 041
     Dates: start: 20120517, end: 20120523

REACTIONS (2)
  - PNEUMONIA [None]
  - NEUTROPHIL COUNT DECREASED [None]
